FAERS Safety Report 7339042-5 (Version None)
Quarter: 2011Q1

REPORT INFORMATION
  Report Type: 
  Country: None (occurrence: None)
  Receive Date: 20110308
  Receipt Date: 20110223
  Transmission Date: 20110831
  Serious: Yes (Hospitalization)
  Sender: FDA-Public Use
  Company Number: FR-ELI_LILLY_AND_COMPANY-FR201102007384

PATIENT
  Sex: Male

DRUGS (7)
  1. CYMBALTA [Suspect]
     Indication: DEPRESSION
     Dosage: 60 MG, DAILY (1/D)
     Route: 048
     Dates: start: 20080409, end: 20080420
  2. CYMBALTA [Suspect]
     Dosage: 30 MG, DAILY (1/D)
     Route: 048
     Dates: start: 20080421, end: 20080423
  3. LYSANXIA [Concomitant]
     Indication: ANXIETY
     Dosage: 10 MG, DAILY (1/D)
     Route: 048
     Dates: start: 20080409
  4. TERALITHE [Concomitant]
     Indication: BIPOLAR DISORDER
     Dosage: 1.5 D/F, DAILY (1/D)
     Route: 048
  5. IMOVANE [Concomitant]
     Indication: INSOMNIA
     Dosage: 7.5 MG, DAILY (1/D)
     Route: 048
     Dates: start: 20080409
  6. ESPERAL [Concomitant]
     Indication: ALCOHOL ABUSE
     Dosage: 500 MG, DAILY (1/D)
     Route: 048
     Dates: start: 20080409
  7. ATARAX [Concomitant]
     Indication: ANXIETY
     Dosage: 100 MG, DAILY (1/D)
     Route: 048
     Dates: start: 20080409

REACTIONS (3)
  - GAMMA-GLUTAMYLTRANSFERASE INCREASED [None]
  - ASPARTATE AMINOTRANSFERASE INCREASED [None]
  - ALANINE AMINOTRANSFERASE INCREASED [None]
